FAERS Safety Report 7023271-4 (Version None)
Quarter: 2010Q3

REPORT INFORMATION
  Report Type: 
  Country: None (occurrence: None)
  Receive Date: 20100930
  Receipt Date: 20100914
  Transmission Date: 20110219
  Serious: Yes (Other)
  Sender: FDA-Public Use
  Company Number: PHHY2010BR54630

PATIENT
  Sex: Female

DRUGS (3)
  1. DIOVAN HCT [Suspect]
     Indication: HYPERTENSION
     Dosage: 1 TABLET (320/25MG) DAILY
     Route: 048
  2. CRESTOR [Concomitant]
     Indication: BLOOD CHOLESTEROL INCREASED
     Dosage: 1 TABLET (10 MG) DAILY
     Route: 048
  3. ASPIRIN [Concomitant]
     Indication: CATHETERISATION CARDIAC
     Dosage: 1 TABLET (100 MG) DAILY
     Route: 048

REACTIONS (17)
  - ERYSIPELAS [None]
  - ERYTHEMA [None]
  - FACIAL ASYMMETRY [None]
  - FACIAL PAIN [None]
  - HEADACHE [None]
  - HYPERSENSITIVITY [None]
  - INFLAMMATION [None]
  - INFLUENZA [None]
  - PRURITUS [None]
  - PYREXIA [None]
  - RHINITIS [None]
  - SKIN EXFOLIATION [None]
  - SWELLING FACE [None]
  - THROAT IRRITATION [None]
  - TREMOR [None]
  - WOUND [None]
  - WOUND DECOMPOSITION [None]
